FAERS Safety Report 5767805-6 (Version None)
Quarter: 2008Q2

REPORT INFORMATION
  Report Type: 
  Country: None (occurrence: None)
  Receive Date: 20080612
  Receipt Date: 20080604
  Transmission Date: 20081010
  Serious: Yes (Other)
  Sender: FDA-Public Use
  Company Number: US-TEVA-172479USA

PATIENT
  Sex: Female
  Weight: 77.1 kg

DRUGS (4)
  1. GABAPENTIN [Suspect]
     Indication: NERVE INJURY
     Route: 048
     Dates: start: 20040101
  2. PREGABALIN [Suspect]
     Indication: NERVE INJURY
     Dates: end: 20071101
  3. TYLOX [Suspect]
     Route: 048
     Dates: start: 20060101
  4. VENLAFAXINE HCL [Concomitant]
     Indication: DEPRESSION

REACTIONS (12)
  - CONFUSIONAL STATE [None]
  - DEPRESSION [None]
  - DRUG DEPENDENCE [None]
  - DRUG INEFFECTIVE [None]
  - DRUG INTOLERANCE [None]
  - FEELING ABNORMAL [None]
  - ILL-DEFINED DISORDER [None]
  - MEMORY IMPAIRMENT [None]
  - MENTAL IMPAIRMENT [None]
  - MULTIPLE SCLEROSIS [None]
  - PRECANCEROUS CELLS PRESENT [None]
  - WEIGHT INCREASED [None]
